FAERS Safety Report 21396344 (Version 1)
Quarter: 2022Q3

REPORT INFORMATION
  Report Type: Spontaneous
  Country: DE (occurrence: DE)
  Receive Date: 20220930
  Receipt Date: 20220930
  Transmission Date: 20221027
  Serious: Yes (Hospitalization)
  Sender: FDA-Public Use
  Company Number: DE-NOVARTISPH-NVSC2022DE217233

PATIENT
  Age: 22 Year
  Sex: Female

DRUGS (1)
  1. IBUPROFEN [Suspect]
     Active Substance: IBUPROFEN
     Indication: Product used for unknown indication
     Dosage: 600 MG
     Route: 048

REACTIONS (5)
  - Appendicitis [Unknown]
  - Peritoneal haematoma [Unknown]
  - Haematochezia [Unknown]
  - Abdominal pain lower [Unknown]
  - Lower gastrointestinal haemorrhage [Unknown]
